FAERS Safety Report 6403293-4 (Version None)
Quarter: 2009Q4

REPORT INFORMATION
  Report Type: 
  Country: None (occurrence: None)
  Receive Date: 20091016
  Receipt Date: 20091006
  Transmission Date: 20100525
  Serious: Yes (Other)
  Sender: FDA-Public Use
  Company Number: US-JNJFOC-20091001872

PATIENT
  Sex: Female
  Weight: 68 kg

DRUGS (14)
  1. REMICADE [Suspect]
     Indication: RHEUMATOID ARTHRITIS
     Route: 042
     Dates: start: 20080602, end: 20090730
  2. CELEBREX [Concomitant]
     Indication: RHEUMATOID ARTHRITIS
  3. TOPROL-XL [Concomitant]
     Indication: HYPERTENSION
  4. FLEXERIL [Concomitant]
  5. XANAX [Concomitant]
  6. SYNTHROID [Concomitant]
     Indication: HYPOTHYROIDISM
  7. ATACAND HCT [Concomitant]
     Indication: HYPERTENSION
  8. ASPIRIN [Concomitant]
  9. PLAQUENIL [Concomitant]
  10. RECLAST [Concomitant]
  11. METHOTREXATE [Concomitant]
  12. FOLIC ACID [Concomitant]
  13. CYTOMEL [Concomitant]
  14. LOVASTATIN [Concomitant]

REACTIONS (1)
  - SQUAMOUS CELL CARCINOMA [None]
